FAERS Safety Report 5643524-1 (Version None)
Quarter: 2008Q1

REPORT INFORMATION
  Report Type: 
  Country: None (occurrence: None)
  Receive Date: 20080228
  Receipt Date: 20080206
  Transmission Date: 20080703
  Serious: No
  Sender: FDA-Public Use
  Company Number: US-BOEHRINGER INGELHEIM GMBH, GERMANY-2007-BP-24837BP

PATIENT
  Age: 51 Year
  Sex: Female
  Weight: 88 kg

DRUGS (8)
  1. SPIRIVA [Suspect]
     Indication: ASTHMA
     Route: 055
     Dates: start: 20061025, end: 20071205
  2. SPIRIVA [Suspect]
     Indication: CHRONIC OBSTRUCTIVE PULMONARY DISEASE
  3. LISINOPRIL [Concomitant]
  4. DYAZIDE [Concomitant]
     Dosage: 37/25
  5. VYTORIN [Concomitant]
     Dosage: 10/40
  6. ADDERALL 10 [Concomitant]
  7. PROVIGIL [Concomitant]
  8. ADVAIR DISKUS 100/50 [Concomitant]

REACTIONS (10)
  - ASTHMA [None]
  - CHRONIC OBSTRUCTIVE PULMONARY DISEASE [None]
  - COUGH [None]
  - DISCOMFORT [None]
  - DRUG INEFFECTIVE [None]
  - DYSPNOEA [None]
  - IMPAIRED WORK ABILITY [None]
  - INSOMNIA [None]
  - PAIN [None]
  - PULMONARY FUNCTION TEST DECREASED [None]
